FAERS Safety Report 6316599-4 (Version None)
Quarter: 2009Q3

REPORT INFORMATION
  Report Type: 
  Country: None (occurrence: None)
  Receive Date: 20090820
  Receipt Date: 20090817
  Transmission Date: 20100115
  Serious: Yes (Other)
  Sender: FDA-Public Use
  Company Number: KR-TEVA-206098ISR

PATIENT
  Age: 11 Year
  Sex: Female

DRUGS (4)
  1. DOXORUBICIN HCL [Suspect]
     Indication: UTERINE CANCER
  2. DOXORUBICIN HCL [Concomitant]
  3. IFOSFAMIDE [Suspect]
     Indication: UTERINE CANCER
  4. VINCRISTINE SULFATE [Concomitant]

REACTIONS (1)
  - ACUTE LYMPHOCYTIC LEUKAEMIA [None]
